FAERS Safety Report 13085023 (Version 1)
Quarter: 2017Q1

REPORT INFORMATION
  Report Type: Spontaneous
  Country: US (occurrence: US)
  Receive Date: 20170104
  Receipt Date: 20170104
  Transmission Date: 20170428
  Serious: Yes (Other)
  Sender: FDA-Public Use
  Company Number: US-AKORN PHARMACEUTICALS-2016AKN00937

PATIENT
  Age: 39 Year
  Sex: Female
  Weight: 70.3 kg

DRUGS (2)
  1. DRYSOL [Concomitant]
     Active Substance: ALUMINUM CHLORIDE
     Indication: HYPERHIDROSIS
     Dosage: 1 UNK, 1X/DAY
     Dates: start: 2013
  2. MYORISAN [Suspect]
     Active Substance: ISOTRETINOIN
     Indication: ACNE
     Dosage: 40 MG, 2X/DAY
     Route: 048
     Dates: start: 20160705, end: 2016

REACTIONS (4)
  - Irritability [Not Recovered/Not Resolved]
  - Blood triglycerides increased [Recovering/Resolving]
  - Drug ineffective [Not Recovered/Not Resolved]
  - Lip dry [Not Recovered/Not Resolved]

NARRATIVE: CASE EVENT DATE: 20160617
